FAERS Safety Report 4305480-8 (Version None)
Quarter: 2004Q1

REPORT INFORMATION
  Report Type: 
  Country: None (occurrence: None)
  Receive Date: 20040226
  Receipt Date: 20030918
  Transmission Date: 20041129
  Serious: No
  Sender: FDA-Public Use
  Company Number: US-BRISTOL-MYERS SQUIBB COMPANY-12387163

PATIENT
  Age: 53 Year
  Sex: Female
  Weight: 86 kg

DRUGS (6)
  1. ABILIFY [Suspect]
     Indication: PSYCHOTIC DISORDER
     Route: 048
     Dates: start: 20030911
  2. CELEXA [Concomitant]
  3. DITROPAN [Concomitant]
  4. LISINOPRIL [Concomitant]
  5. PROVIGIL [Concomitant]
  6. CYCLOGYL [Concomitant]
     Route: 047

REACTIONS (3)
  - HYPERCHLORHYDRIA [None]
  - INSOMNIA [None]
  - RESTLESSNESS [None]
